FAERS Safety Report 20716819 (Version 1)
Quarter: 2022Q2

REPORT INFORMATION
  Report Type: Spontaneous
  Country: FR (occurrence: FR)
  Receive Date: 20220416
  Receipt Date: 20220416
  Transmission Date: 20220721
  Serious: Yes (Other)
  Sender: FDA-Public Use
  Company Number: None

PATIENT
  Age: 74 Year
  Sex: Male

DRUGS (2)
  1. HYDREA [Suspect]
     Active Substance: HYDROXYUREA
     Indication: Product used for unknown indication
     Dosage: 3 GELULES/SEMAINE
     Route: 048
     Dates: start: 1990, end: 2012
  2. RUXOLITINIB [Suspect]
     Active Substance: RUXOLITINIB
     Indication: Polycythaemia vera
     Dosage: 20 MG 2/J
     Route: 048
     Dates: start: 2012

REACTIONS (1)
  - Basosquamous carcinoma [Not Recovered/Not Resolved]

NARRATIVE: CASE EVENT DATE: 20160201
